FAERS Safety Report 10252017 (Version 3)
Quarter: 2017Q1

REPORT INFORMATION
  Report Type: Report from Study
  Country: CA (occurrence: CA)
  Receive Date: 20140623
  Receipt Date: 20170116
  Transmission Date: 20170428
  Serious: Yes (Other)
  Sender: FDA-Public Use
  Company Number: PHHY2013CA063034

PATIENT
  Age: 29 Year
  Sex: Female

DRUGS (3)
  1. GILENYA [Suspect]
     Active Substance: FINGOLIMOD HYDROCHLORIDE
     Dosage: 0.5 MG, QD
     Route: 048
  2. GILENYA [Suspect]
     Active Substance: FINGOLIMOD HYDROCHLORIDE
     Dosage: TAKING GILENYA ABOUT SIX DAYS PER WEEK INSTEAD OF SEVEN
     Route: 048
  3. GILENYA [Suspect]
     Active Substance: FINGOLIMOD HYDROCHLORIDE
     Indication: RELAPSING-REMITTING MULTIPLE SCLEROSIS
     Dosage: 0.5 MG, QD
     Route: 048
     Dates: start: 20130614

REACTIONS (26)
  - Vision blurred [Unknown]
  - Muscle spasticity [Unknown]
  - Joint stiffness [Unknown]
  - Gait disturbance [Unknown]
  - Chest discomfort [Unknown]
  - Herpes ophthalmic [Unknown]
  - Insomnia [Unknown]
  - Decreased appetite [Unknown]
  - Abnormal sensation in eye [Unknown]
  - Heart rate decreased [Recovered/Resolved]
  - Inappropriate schedule of drug administration [Unknown]
  - Sleep disorder [Unknown]
  - Nausea [Unknown]
  - Dyspnoea [Unknown]
  - Extrasystoles [Unknown]
  - Heart rate irregular [Unknown]
  - Memory impairment [Unknown]
  - Back pain [Unknown]
  - Fatigue [Unknown]
  - Arthralgia [Unknown]
  - Anxiety [Unknown]
  - Depression [Unknown]
  - Headache [Unknown]
  - Central nervous system lesion [Unknown]
  - Musculoskeletal pain [Unknown]
  - Paraesthesia [Unknown]

NARRATIVE: CASE EVENT DATE: 20130614
